FAERS Safety Report 9473683 (Version 1)
Quarter: 2013Q3

REPORT INFORMATION
  Report Type: Spontaneous
  Country: US (occurrence: US)
  Receive Date: 20130823
  Receipt Date: 20130823
  Transmission Date: 20140515
  Serious: No
  Sender: FDA-Public Use
  Company Number: US-BRISTOL-MYERS SQUIBB COMPANY-16890675

PATIENT
  Age: 72 Year
  Sex: Male
  Weight: 89 kg

DRUGS (3)
  1. SPRYCEL [Suspect]
     Indication: CHRONIC MYELOID LEUKAEMIA
     Dates: start: 201205
  2. TYLENOL [Concomitant]
  3. NORVASC [Concomitant]

REACTIONS (1)
  - Insomnia [Unknown]
